FAERS Safety Report 8616213-9 (Version None)
Quarter: 2012Q3

REPORT INFORMATION
  Report Type: 
  Country: None (occurrence: None)
  Receive Date: 20120809
  Receipt Date: 20120731
  Transmission Date: 20120928
  Serious: Yes (Death, Hospitalization, Other)
  Sender: FDA-Public Use
  Company Number: 2012MA009155

PATIENT
  Age: 20 Year
  Sex: Male

DRUGS (4)
  1. KADIAN [Suspect]
     Indication: INTENTIONAL DRUG MISUSE
     Dosage: PARN
     Route: 051
  2. HEROIN [Suspect]
     Indication: DRUG ABUSE
     Dosage: PARN
     Route: 051
  3. LORAZEPAM [Suspect]
     Indication: DRUG ABUSE
     Dosage: PARN
     Route: 051
  4. OXYCODONE HCL [Suspect]
     Indication: INTENTIONAL DRUG MISUSE
     Dosage: PARN
     Route: 051

REACTIONS (9)
  - BRAIN OEDEMA [None]
  - TOXICITY TO VARIOUS AGENTS [None]
  - INTENTIONAL DRUG MISUSE [None]
  - OVERDOSE [None]
  - LOSS OF CONSCIOUSNESS [None]
  - RESPIRATORY ARREST [None]
  - BRAIN DEATH [None]
  - COMA [None]
  - DRUG ABUSE [None]
